FAERS Safety Report 10400226 (Version 2)
Quarter: 2014Q3

REPORT INFORMATION
  Report Type: Spontaneous
  Country: US (occurrence: US)
  Receive Date: 20140821
  Receipt Date: 20140821
  Transmission Date: 20150326
  Serious: Yes (Death)
  Sender: FDA-Public Use
  Company Number: US-BAUSCH-SYM-2014-23918

PATIENT
  Sex: Male

DRUGS (1)
  1. XENAZINE [Suspect]
     Active Substance: TETRABENAZINE
     Indication: HUNTINGTON^S DISEASE
     Dosage: 25 MG TWICE DAILY AND ONE-HALF TABLET AT NOON
     Route: 048
     Dates: start: 201107

REACTIONS (1)
  - Huntington^s disease [Fatal]
